FAERS Safety Report 24019114 (Version 1)
Quarter: 2024Q2

REPORT INFORMATION
  Report Type: Spontaneous
  Country: CH (occurrence: None)
  Receive Date: 20240627
  Receipt Date: 20240627
  Transmission Date: 20240716
  Serious: Yes (Hospitalization, Other)
  Sender: FDA-Public Use
  Company Number: 2024A142778

PATIENT
  Age: 81 Year
  Sex: Male

DRUGS (11)
  1. IMFINZI [Suspect]
     Active Substance: DURVALUMAB
     Indication: Lung adenocarcinoma
     Dosage: 10.0MG/KG UNKNOWN
     Route: 042
     Dates: start: 20230901, end: 20240123
  2. IMFINZI [Suspect]
     Active Substance: DURVALUMAB
     Indication: Lung adenocarcinoma
     Dosage: 1500.0MG UNKNOWN
     Route: 042
     Dates: start: 20240220, end: 20240319
  3. METFORMIN HYDROCHLORIDE [Concomitant]
     Active Substance: METFORMIN HYDROCHLORIDE
     Indication: Diabetes mellitus
     Dosage: LONGTERM.
     Route: 048
  4. LINAGLIPTIN [Concomitant]
     Active Substance: LINAGLIPTIN
     Indication: Diabetes mellitus
     Dosage: LONGTERM
     Route: 048
  5. DIOVAN [Concomitant]
     Active Substance: VALSARTAN
     Indication: Diabetes mellitus
     Dosage: LONGTERM
     Route: 048
  6. IBUPROFEN [Concomitant]
     Active Substance: IBUPROFEN
     Indication: Pain
     Dosage: LONGTERM. MAX. 3X/J. ; AS NECESSARY400.0MG AS REQUIRED
     Route: 048
  7. DAFALGAN [Concomitant]
     Active Substance: ACETAMINOPHEN
     Indication: Pain
     Dosage: LONGTERM. MAX. 4X/J. ; AS NECESSARY500.0MG AS REQUIRED
     Route: 048
  8. LORAZEPAM [Concomitant]
     Active Substance: LORAZEPAM
     Indication: Anxiety
     Dosage: LONGTERM
     Route: 048
  9. ZOLPIDEM TARTRATE [Concomitant]
     Active Substance: ZOLPIDEM TARTRATE
     Indication: Insomnia
     Dosage: LONGTERM. 1X/J SI INSOMNIE. ; AS NECESSARY10.0MG UNKNOWN
     Route: 048
  10. OMEPRAZOLE [Concomitant]
     Active Substance: DONEPEZIL HYDROCHLORIDE\OMEPRAZOLE\OMEPRAZOLE MAGNESIUM
     Indication: Pain
     Dosage: LONGTERM. MAX. 1X/J SI DOULEURS ?PIGASTRIQUES. ; AS NECESSARY20.0MG AS REQUIRED
     Route: 048
  11. ATARAX [Concomitant]
     Active Substance: HYDROXYZINE HYDROCHLORIDE
     Dosage: LONGTERM

REACTIONS (6)
  - Eosinophilia [Recovered/Resolved]
  - Autoimmune anaemia [Not Recovered/Not Resolved]
  - Thrombocytopenia [Recovered/Resolved]
  - Pneumonitis [Not Recovered/Not Resolved]
  - Cholestasis [Recovered/Resolved]
  - Blood creatine increased [Recovered/Resolved]

NARRATIVE: CASE EVENT DATE: 20240417
